FAERS Safety Report 12654249 (Version 1)
Quarter: 2016Q3

REPORT INFORMATION
  Report Type: Spontaneous
  Country: US (occurrence: None)
  Receive Date: 20160815
  Receipt Date: 20160815
  Transmission Date: 20161109
  Serious: Yes (Disabling)
  Sender: FDA-Public Use
  Company Number: None

PATIENT
  Age: 64 Year
  Sex: Female
  Weight: 72.58 kg

DRUGS (7)
  1. VITAMIN D [Concomitant]
     Active Substance: CHOLECALCIFEROL
  2. PROBIOTIC [Concomitant]
     Active Substance: PROBIOTICS NOS
  3. PLAQUINAL [Concomitant]
  4. ASA [Concomitant]
     Active Substance: ASPIRIN
  5. RESTASIS [Suspect]
     Active Substance: CYCLOSPORINE
     Indication: DRY EYE
     Dosage: 1 VIAL TWICE A DAY INTO THE EYE
     Route: 031
     Dates: start: 20160511, end: 20160811
  6. MVI [Concomitant]
     Active Substance: VITAMINS
  7. LIPITOR [Concomitant]
     Active Substance: ATORVASTATIN CALCIUM

REACTIONS (3)
  - Conjunctivitis viral [None]
  - Infection susceptibility increased [None]
  - Conjunctivitis [None]

NARRATIVE: CASE EVENT DATE: 20160806
